FAERS Safety Report 16806944 (Version 3)
Quarter: 2025Q3

REPORT INFORMATION
  Report Type: Spontaneous
  Country: EU (occurrence: EU)
  Receive Date: 20190913
  Receipt Date: 20250930
  Transmission Date: 20251021
  Serious: Yes (Death, Life-Threatening, Hospitalization, Other)
  Sender: GLAXOSMITHKLINE
  Company Number: None

PATIENT
  Age: 65 Year
  Sex: Female

DRUGS (13)
  1. BUPROPION [Suspect]
     Active Substance: BUPROPION
     Indication: Mental disorder
     Dosage: 300 MG, QD , (300 MG, 1X/DAY)
     Route: 065
  2. DIAZEPAM [Suspect]
     Active Substance: DIAZEPAM
     Indication: Product used for unknown indication
     Route: 065
  3. AMITRIPTYLINE [Suspect]
     Active Substance: AMITRIPTYLINE
     Indication: Mental disorder
     Dosage: 75 MG, QD, (75 MILLIGRAM/ DAY)
     Route: 065
  4. ARIPIPRAZOLE [Suspect]
     Active Substance: ARIPIPRAZOLE
     Indication: Mental disorder
     Dosage: 15 MG, QD, (15 MG, 1X/DAY)
     Route: 065
  5. NEFOPAM [Suspect]
     Active Substance: NEFOPAM
     Indication: Analgesic therapy
     Dosage: 60 MG, QD
  6. NEFOPAM [Suspect]
     Active Substance: NEFOPAM
     Dosage: 120 MG, QD
  7. NEFOPAM [Suspect]
     Active Substance: NEFOPAM
     Dosage: 30 MG, QD
  8. MIRTAZAPINE [Suspect]
     Active Substance: MIRTAZAPINE
     Indication: Mental disorder
     Dosage: 15 MG, QD (15 MG, 1X/DAY)
  9. NOREPINEPHRINE [Suspect]
     Active Substance: NOREPINEPHRINE
     Indication: Supraventricular tachycardia
  10. TRAMADOL [Suspect]
     Active Substance: TRAMADOL
     Indication: Mental disorder
     Dosage: 300 MG, QD, (300 MG, 1X/DAY)
     Route: 065
  11. AMISULPRIDE [Suspect]
     Active Substance: AMISULPRIDE
     Indication: Mental disorder
     Dosage: 50 MG, QD (50 MG, 1X/DAY)
     Route: 065
  12. EPINEPHRINE [Suspect]
     Active Substance: EPINEPHRINE
     Indication: Product used for unknown indication
  13. EPINEPHRINE [Concomitant]
     Active Substance: EPINEPHRINE
     Indication: Supraventricular tachycardia
     Route: 065

REACTIONS (14)
  - Myoclonus [Fatal]
  - Serotonin syndrome [Fatal]
  - Dyspnoea [Fatal]
  - Hyperhidrosis [Fatal]
  - Autonomic nervous system imbalance [Fatal]
  - Mydriasis [Fatal]
  - Shock [Fatal]
  - Haemodynamic instability [Unknown]
  - Hyperlactacidaemia [Unknown]
  - Chronic obstructive pulmonary disease [Not Recovered/Not Resolved]
  - Supraventricular tachycardia [Unknown]
  - Respiratory failure [Unknown]
  - Loss of consciousness [Unknown]
  - Drug ineffective [Unknown]
